FAERS Safety Report 22140236 (Version 1)
Quarter: 2023Q1

REPORT INFORMATION
  Report Type: Spontaneous
  Country: JP (occurrence: JP)
  Receive Date: 20230327
  Receipt Date: 20230327
  Transmission Date: 20230418
  Serious: Yes (Death, Hospitalization, Other)
  Sender: FDA-Public Use
  Company Number: JP-GLAXOSMITHKLINE-JP2022JPN138008

PATIENT

DRUGS (12)
  1. DAPRODUSTAT [Suspect]
     Active Substance: DAPRODUSTAT
     Indication: Chronic kidney disease
     Dosage: 4 MG, QD
     Route: 048
     Dates: start: 20220402, end: 20220822
  2. DAPRODUSTAT [Suspect]
     Active Substance: DAPRODUSTAT
     Indication: Nephrogenic anaemia
     Dosage: 6 MG, QD
     Route: 048
     Dates: start: 20220823, end: 20220905
  3. EDIROL CAPSULE [Concomitant]
     Indication: Renal failure
     Dosage: 0.75, QD
     Route: 048
  4. FUROSEMIDE [Concomitant]
     Active Substance: FUROSEMIDE
     Indication: Cardiac failure
     Dosage: 20 MG, QD
     Route: 048
     Dates: start: 20220317, end: 20220822
  5. SAMSCA [Concomitant]
     Active Substance: TOLVAPTAN
     Indication: Cardiac failure
     Dosage: 7.5 MG, QD
     Route: 048
     Dates: start: 20220326, end: 20220523
  6. KAYEXALATE DRYSYRUP [Concomitant]
     Indication: Renal failure
     Dosage: 3.27 G, BID
     Route: 048
     Dates: start: 20220317, end: 20220905
  7. KREMEZIN [Concomitant]
     Active Substance: ACTIVATED CHARCOAL
     Indication: Renal failure
     Dosage: 2 G, TID
     Route: 048
     Dates: start: 20220317, end: 20220905
  8. LANSOPRAZOLE [Concomitant]
     Active Substance: LANSOPRAZOLE
     Indication: Gastric ulcer
     Dosage: 15 MG, QD
     Route: 048
     Dates: start: 20220317, end: 20220905
  9. FEBUXOSTAT [Concomitant]
     Active Substance: FEBUXOSTAT
     Indication: Blood uric acid increased
     Dosage: 10 MG, QD
     Route: 048
     Dates: start: 20220402, end: 20220606
  10. SODIUM BICARBONATE [Concomitant]
     Active Substance: SODIUM BICARBONATE
     Indication: Renal failure
     Dosage: 2 G, BID
     Route: 048
     Dates: start: 20220809, end: 20220905
  11. AZOSEMIDE [Concomitant]
     Active Substance: AZOSEMIDE
     Indication: Cardiac failure
     Dosage: 30 MG, QD
     Route: 048
     Dates: start: 20220809, end: 20220905
  12. TRICHLORMETHIAZIDE [Concomitant]
     Active Substance: TRICHLORMETHIAZIDE
     Indication: Cardiac failure
     Dosage: 0.5 MG, QD
     Route: 048
     Dates: start: 20220823, end: 20220905

REACTIONS (8)
  - Cardiac failure [Fatal]
  - Renal impairment [Unknown]
  - Fall [Unknown]
  - Mobility decreased [Unknown]
  - Loss of personal independence in daily activities [Unknown]
  - Hypophagia [Unknown]
  - Fluid retention [Unknown]
  - Renal failure [Fatal]

NARRATIVE: CASE EVENT DATE: 20220801
